FAERS Safety Report 24378899 (Version 3)
Quarter: 2024Q4

REPORT INFORMATION
  Report Type: Spontaneous
  Country: US (occurrence: US)
  Receive Date: 20240930
  Receipt Date: 20241025
  Transmission Date: 20250115
  Serious: Yes (Other)
  Sender: ABBVIE
  Company Number: US-ABBVIE-5938644

PATIENT
  Age: 48 Year
  Sex: Female

DRUGS (7)
  1. HUMIRA [Suspect]
     Active Substance: ADALIMUMAB
     Indication: Psoriasis
     Dosage: DOSAGE: 80 MG/ML CITRATE FREE
     Route: 058
     Dates: start: 201612, end: 201708
  2. HUMIRA [Suspect]
     Active Substance: ADALIMUMAB
     Indication: Psoriatic arthropathy
     Dosage: DOSAGE: 80 MG/ML CITRATE FREE?LAST ADMIN DATE 2022
     Route: 058
     Dates: start: 20220201
  3. HUMIRA [Suspect]
     Active Substance: ADALIMUMAB
     Indication: Hidradenitis
     Dosage: DOSAGE: 80 MG/ML CITRATE FREE
     Route: 058
     Dates: start: 202212, end: 202409
  4. PROZAC [Concomitant]
     Active Substance: FLUOXETINE HYDROCHLORIDE
     Indication: Depression
     Dosage: PILL
     Route: 048
  5. IBUPROFEN [Concomitant]
     Active Substance: IBUPROFEN
     Indication: Pain
     Dosage: TIME INTERVAL: AS NECESSARY: PILL
     Route: 048
  6. CLOBETASOL [Concomitant]
     Active Substance: CLOBETASOL
     Indication: Psoriasis
     Dosage: AS NEEDED
     Route: 061
  7. CLINDAMYCIN [Concomitant]
     Active Substance: CLINDAMYCIN
     Indication: Hidradenitis
     Dosage: FREQUENCY- BID PRN
     Route: 061

REACTIONS (1)
  - Extramammary Paget^s disease [Not Recovered/Not Resolved]

NARRATIVE: CASE EVENT DATE: 20240923
